FAERS Safety Report 5389606-3 (Version None)
Quarter: 2007Q3

REPORT INFORMATION
  Report Type: 
  Country: None (occurrence: None)
  Receive Date: 20070717
  Receipt Date: 20070705
  Transmission Date: 20080115
  Serious: Yes (Other)
  Sender: FDA-Public Use
  Company Number: US-PFIZER INC-2007055894

PATIENT
  Sex: Female
  Weight: 81 kg

DRUGS (4)
  1. NEURONTIN [Suspect]
     Indication: PAIN
  2. NEURONTIN [Suspect]
     Indication: FIBROMYALGIA
  3. DILANTIN [Suspect]
  4. CYMBALTA [Concomitant]

REACTIONS (3)
  - MENINGIOMA [None]
  - SPEECH DISORDER [None]
  - STEVENS-JOHNSON SYNDROME [None]
